FAERS Safety Report 17064396 (Version 2)
Quarter: 2025Q1

REPORT INFORMATION
  Report Type: Report from Study
  Country: GB (occurrence: GB)
  Receive Date: 20191122
  Receipt Date: 20250131
  Transmission Date: 20250408
  Serious: Yes (Other)
  Sender: PFIZER
  Company Number: GB-PFIZER INC-2019489276

PATIENT

DRUGS (4)
  1. GENTAMICIN SULFATE [Suspect]
     Active Substance: GENTAMICIN SULFATE
     Indication: Febrile neutropenia
     Dosage: 7 MG/KG, 1X/DAY (INFUSED INTRAVENOUSLY IN 50-100 ML OF 0.9% SALINE OVER 60 MINUTES)
     Route: 042
  2. GENTAMICIN SULFATE [Suspect]
     Active Substance: GENTAMICIN SULFATE
     Indication: Evidence based treatment
  3. CEFTRIAXONE SODIUM [Suspect]
     Active Substance: CEFTRIAXONE SODIUM
     Indication: Febrile neutropenia
     Dosage: 80 MG/KG, 1X/DAY (A MAXIMUM DOSE OF 4 G)
     Route: 040
  4. CEFTRIAXONE SODIUM [Suspect]
     Active Substance: CEFTRIAXONE SODIUM
     Indication: Evidence based treatment

REACTIONS (1)
  - Deafness unilateral [Unknown]
